FAERS Safety Report 24725440 (Version 4)
Quarter: 2024Q4

REPORT INFORMATION
  Report Type: Spontaneous
  Country: FR (occurrence: FR)
  Receive Date: 20241212
  Receipt Date: 20241223
  Transmission Date: 20250115
  Serious: Yes (Hospitalization)
  Sender: ROCHE
  Company Number: None

PATIENT
  Age: 77 Year
  Sex: Female
  Weight: 50 kg

DRUGS (20)
  1. RITUXIMAB [Suspect]
     Active Substance: RITUXIMAB
     Indication: Diffuse large B-cell lymphoma
     Dosage: 55  MILLIGRAM, 1/DAY
     Route: 042
     Dates: start: 20220615
  2. TAFASITAMAB [Suspect]
     Active Substance: TAFASITAMAB
     Indication: Diffuse large B-cell lymphoma
     Route: 042
     Dates: start: 20220614
  3. TAFASITAMAB [Suspect]
     Active Substance: TAFASITAMAB
     Route: 042
     Dates: start: 20221005
  4. LENALIDOMIDE [Suspect]
     Active Substance: LENALIDOMIDE
     Indication: Diffuse large B-cell lymphoma
     Route: 048
     Dates: start: 20220614
  5. DOXORUBICIN HYDROCHLORIDE [Suspect]
     Active Substance: DOXORUBICIN HYDROCHLORIDE
     Indication: Diffuse large B-cell lymphoma
     Dosage: 76 MILLIGRAM, 1/DAY
     Route: 042
     Dates: start: 20220615, end: 20221005
  6. VINCRISTINE [Suspect]
     Active Substance: VINCRISTINE
     Indication: Diffuse large B-cell lymphoma
     Route: 042
     Dates: start: 20220615, end: 20221005
  7. PREDNISOLONE [Suspect]
     Active Substance: PREDNISOLONE
     Indication: Diffuse large B-cell lymphoma
     Route: 042
     Dates: start: 20220615, end: 20221005
  8. CYCLOPHOSPHAMIDE [Suspect]
     Active Substance: CYCLOPHOSPHAMIDE
     Indication: Diffuse large B-cell lymphoma
     Dosage: 1120 MILLIGRAM, 1/DAY
     Route: 042
     Dates: start: 20220615, end: 20221005
  9. BACTRIM [Concomitant]
     Active Substance: SULFAMETHOXAZOLE\TRIMETHOPRIM
     Route: 050
     Dates: start: 202206
  10. LEUCOVORIN CALCIUM [Concomitant]
     Active Substance: LEUCOVORIN CALCIUM
     Indication: Product used for unknown indication
     Route: 050
     Dates: start: 20221012
  11. VALACYCLOVIR HYDROCHLORIDE [Concomitant]
     Active Substance: VALACYCLOVIR HYDROCHLORIDE
     Route: 050
     Dates: start: 202206
  12. POLYETHYLENE GLYCOL 3350\POTASSIUM CHLORIDE\SODIUM BICARBONATE\SODIUM [Concomitant]
     Active Substance: POLYETHYLENE GLYCOL 3350\POTASSIUM CHLORIDE\SODIUM BICARBONATE\SODIUM CHLORIDE
     Route: 048
  13. PRIMPERAN [Concomitant]
     Active Substance: METOCLOPRAMIDE HYDROCHLORIDE
     Indication: Nausea
     Route: 048
  14. BISOPROLOL [Concomitant]
     Active Substance: BISOPROLOL
     Route: 050
     Dates: start: 20221018
  15. INNOHEP [Concomitant]
     Active Substance: TINZAPARIN SODIUM
     Indication: Thrombolysis
     Route: 050
     Dates: start: 202206, end: 202211
  16. RAMIPRIL [Concomitant]
     Active Substance: RAMIPRIL
     Indication: Hypertension
     Route: 048
  17. BAIN DE BOUCHE LIPHA [Concomitant]
     Indication: Injury
     Route: 048
     Dates: start: 2022
  18. OXAZEPAM [Concomitant]
     Active Substance: OXAZEPAM
     Indication: Anxiety
     Route: 065
  19. Vitascorbol [Concomitant]
     Indication: Product used for unknown indication
     Route: 048
     Dates: start: 20221208
  20. XANAX [Concomitant]
     Active Substance: ALPRAZOLAM

REACTIONS (2)
  - Drug reaction with eosinophilia and systemic symptoms [Recovered/Resolved]
  - Iodine allergy [Unknown]

NARRATIVE: CASE EVENT DATE: 20221123
